FAERS Safety Report 10769077 (Version 1)
Quarter: 2015Q1

REPORT INFORMATION
  Report Type: Spontaneous
  Country: US (occurrence: None)
  Receive Date: 20150204
  Receipt Date: 20150204
  Transmission Date: 20150721
  Serious: Yes (Death)
  Sender: FDA-Public Use
  Company Number: 2727240

PATIENT
  Age: 30 Year
  Sex: Male

DRUGS (6)
  1. HYDROCODONE [Suspect]
     Active Substance: HYDROCODONE
     Dates: start: 2013, end: 2013
  2. DIPHENHYDRAMINE [Suspect]
     Active Substance: DIPHENHYDRAMINE
     Dates: start: 2013, end: 2013
  3. HEROIN [Suspect]
     Active Substance: DIACETYLMORPHINE
     Dates: start: 2013, end: 2013
  4. ETHANOL [Suspect]
     Active Substance: ALCOHOL
     Dates: start: 2013, end: 2013
  5. CAFFEINE. [Suspect]
     Active Substance: CAFFEINE
     Dates: start: 2013, end: 2013
  6. NICOTINE. [Suspect]
     Active Substance: NICOTINE
     Dates: start: 2013, end: 2013

REACTIONS (4)
  - Respiratory arrest [None]
  - Poisoning [None]
  - Cardiac arrest [None]
  - Drug abuse [None]

NARRATIVE: CASE EVENT DATE: 2013
